FAERS Safety Report 9499425 (Version 1)
Quarter: 2013Q3

REPORT INFORMATION
  Report Type: Spontaneous
  Country: GB (occurrence: None)
  Receive Date: 20130903
  Receipt Date: 20130903
  Transmission Date: 20140515
  Serious: Yes (Other)
  Sender: FDA-Public Use
  Company Number: SYM-2013-09811

PATIENT
  Age: 49 Year
  Sex: Female

DRUGS (4)
  1. METRONIDAZOLE (METRONIDAZOLE) (METRONIDAZOLE) [Suspect]
     Indication: PRODUCT USED FOR UNKNOWN INDICATION
     Dates: start: 20130802
  2. NEXPLANON (ETONOGESTREL) (ETONOGESTREL) [Concomitant]
  3. AMOXICILLIN (AMOXICILLIN) (AMOXICILLIN) [Concomitant]
  4. BENZYDAMINE HYDROCHLORIDE (BENZYDAMINE HYDROCHLORIDE) (BENZYDAMINE HYDROCHLORIDE) [Concomitant]

REACTIONS (3)
  - Joint swelling [None]
  - Vomiting [None]
  - Diarrhoea [None]
